FAERS Safety Report 20517117 (Version 12)
Quarter: 2025Q3

REPORT INFORMATION
  Report Type: Report from Study
  Country: JP (occurrence: JP)
  Receive Date: 20220225
  Receipt Date: 20250917
  Transmission Date: 20251020
  Serious: Yes (Life-Threatening, Hospitalization, Other)
  Sender: ASTELLAS
  Company Number: JP-ASTELLAS-2022JP002674

PATIENT
  Age: 75 Year
  Sex: Male
  Weight: 60 kg

DRUGS (18)
  1. PADCEV [Suspect]
     Active Substance: ENFORTUMAB VEDOTIN-EJFV
     Indication: Metastatic carcinoma of the bladder
     Route: 042
     Dates: start: 20220126, end: 20220209
  2. PADCEV [Suspect]
     Active Substance: ENFORTUMAB VEDOTIN-EJFV
     Indication: Transitional cell carcinoma
  3. SOLU-MEDROL [Suspect]
     Active Substance: METHYLPREDNISOLONE SODIUM SUCCINATE
     Indication: Toxic epidermal necrolysis
     Dosage: 1000 MG, ONCE DAILY
     Route: 065
     Dates: start: 20220214, end: 20220216
  4. JANUVIA [Concomitant]
     Active Substance: SITAGLIPTIN PHOSPHATE
     Indication: Type 2 diabetes mellitus
     Dosage: 50 MG, ONCE DAILY, AFTER BREAKFAST
     Route: 065
     Dates: start: 202012, end: 202204
  5. FEBUXOSTAT [Concomitant]
     Active Substance: FEBUXOSTAT
     Indication: Hyperuricaemia
     Dosage: 10 MG, ONCE DAILY, AFTER BREAKFAST
     Route: 065
     Dates: start: 202012, end: 202204
  6. ACETAMINOPHEN [Concomitant]
     Active Substance: ACETAMINOPHEN
     Indication: Pyrexia
     Dosage: 1000 MG, ONCE DAILY (CONCENTRA: 1000 MG/100 ML)
     Route: 065
     Dates: start: 20220207, end: 20220215
  7. BELSOMRA [Concomitant]
     Active Substance: SUVOREXANT
     Indication: Delirium
     Dosage: 15 MG, ONCE DAILY
     Route: 048
     Dates: start: 20220211, end: 20220226
  8. DIFLORASONE DIACETATE [Concomitant]
     Active Substance: DIFLORASONE DIACETATE
     Indication: Toxic epidermal necrolysis
     Dosage: 15 G, TWICE DAILY
     Route: 065
     Dates: start: 20220214, end: 20220330
  9. HUMULIN R [Concomitant]
     Active Substance: INSULIN HUMAN
     Indication: Hyperglycaemia
     Route: 065
     Dates: start: 20220215, end: 20220424
  10. KENKETU GLOVENIN-I [Concomitant]
     Active Substance: HUMAN IMMUNOGLOBULIN G
     Indication: Toxic epidermal necrolysis
     Dosage: 25000 MG, ONCE DAILY
     Route: 042
     Dates: start: 20220217, end: 20220221
  11. PREDNISOLONE [Concomitant]
     Active Substance: PREDNISOLONE
     Indication: Toxic epidermal necrolysis
     Dosage: 60 MG(1 MG/KG), ONCE DAILY
     Route: 048
     Dates: start: 20220217, end: 20220222
  12. PREDNISOLONE [Concomitant]
     Active Substance: PREDNISOLONE
     Dosage: 50 MG, ONCE DAILY
     Route: 048
     Dates: start: 20220223, end: 20220226
  13. PREDNISOLONE [Concomitant]
     Active Substance: PREDNISOLONE
     Dosage: 40 MG, ONCE DAILY
     Route: 048
     Dates: start: 20220227, end: 20220301
  14. PREDNISOLONE [Concomitant]
     Active Substance: PREDNISOLONE
     Dosage: 30 MG, ONCE DAILY
     Route: 048
     Dates: start: 20220302, end: 20220304
  15. PREDNISOLONE [Concomitant]
     Active Substance: PREDNISOLONE
     Dosage: 20 MG, ONCE DAILY
     Route: 048
     Dates: start: 20220305, end: 20220308
  16. PREDNISOLONE [Concomitant]
     Active Substance: PREDNISOLONE
     Dosage: 10 MG, ONCE DAILY
     Route: 048
     Dates: start: 20220309, end: 20220310
  17. Azunol [Concomitant]
     Indication: Toxic epidermal necrolysis
     Dosage: 30 G, ONCE DAILY
     Route: 065
     Dates: start: 20220218, end: 20220307
  18. HUMAN RED BLOOD CELL [Concomitant]
     Active Substance: HUMAN RED BLOOD CELL
     Indication: Anaemia
     Dosage: 2 DF, ONCE DAILY
     Route: 042
     Dates: start: 20220218, end: 20220218

REACTIONS (9)
  - Toxic epidermal necrolysis [Recovered/Resolved]
  - Pyrexia [Recovered/Resolved]
  - Delirium [Recovered/Resolved]
  - Metastases to lung [Unknown]
  - Stevens-Johnson syndrome [Recovered/Resolved]
  - Anaemia [Recovering/Resolving]
  - Platelet count decreased [Recovered/Resolved]
  - Skin disorder [Recovered/Resolved]
  - Hyperglycaemia [Recovered/Resolved]

NARRATIVE: CASE EVENT DATE: 20220201
